APPROVED DRUG PRODUCT: DAYPRO
Active Ingredient: OXAPROZIN
Strength: 600MG
Dosage Form/Route: TABLET;ORAL
Application: N018841 | Product #004 | TE Code: AB
Applicant: PFIZER INC
Approved: Oct 29, 1992 | RLD: Yes | RS: Yes | Type: RX